FAERS Safety Report 5505773-2 (Version None)
Quarter: 2007Q4

REPORT INFORMATION
  Report Type: 
  Country: None (occurrence: None)
  Receive Date: 20071102
  Receipt Date: 20071023
  Transmission Date: 20080405
  Serious: Yes (Hospitalization, Other)
  Sender: FDA-Public Use
  Company Number: DE-PFIZER INC-2007089507

PATIENT
  Sex: Male

DRUGS (2)
  1. LYRICA [Suspect]
     Indication: ANXIETY DISORDER
     Dosage: DAILY DOSE:150MG
     Route: 048
  2. ALL OTHER THERAPEUTIC PRODUCTS [Concomitant]

REACTIONS (8)
  - ALCOHOL POISONING [None]
  - CONFUSIONAL STATE [None]
  - DRUG DOSE OMISSION [None]
  - HYPOKALAEMIA [None]
  - HYPONATRAEMIA [None]
  - LIVER FUNCTION TEST ABNORMAL [None]
  - RESTLESSNESS [None]
  - RHABDOMYOLYSIS [None]
